FAERS Safety Report 7241310-2 (Version None)
Quarter: 2011Q1

REPORT INFORMATION
  Report Type: 
  Country: None (occurrence: None)
  Receive Date: 20110124
  Receipt Date: 20110119
  Transmission Date: 20110831
  Serious: Yes (Hospitalization)
  Sender: FDA-Public Use
  Company Number: Z0001061A

PATIENT
  Age: 79 Year
  Sex: Female
  Weight: 94.3 kg

DRUGS (11)
  1. LAPATINIB [Suspect]
     Indication: BREAST CANCER METASTATIC
     Dosage: 1000MG PER DAY
     Route: 048
     Dates: start: 20090313
  2. MICONAZOLE NITRATE [Concomitant]
     Dosage: 1APP TWICE PER DAY
     Route: 061
     Dates: start: 20090616
  3. ACETAMINOPHEN [Concomitant]
     Indication: PYREXIA
     Dosage: 500MG AS REQUIRED
     Route: 048
     Dates: start: 20090615, end: 20090616
  4. IMODIUM [Concomitant]
     Indication: DIARRHOEA
     Dosage: 2MG AS REQUIRED
     Route: 048
     Dates: start: 20090616
  5. LOVENOX [Concomitant]
     Indication: THROMBOSIS PROPHYLAXIS
     Dosage: 40MG PER DAY
     Route: 058
     Dates: start: 20090618
  6. NORMAL SALINE [Concomitant]
     Indication: FLUSHING
     Dosage: 10ML THREE TIMES PER DAY
     Route: 042
     Dates: start: 20090615, end: 20090628
  7. ZOFRAN [Concomitant]
     Indication: NAUSEA
     Dosage: 4MG AS REQUIRED
     Route: 042
     Dates: start: 20090615
  8. HEPARIN [Concomitant]
     Dosage: 5ML AS REQUIRED
     Route: 042
     Dates: start: 20090624, end: 20090627
  9. PACLITAXEL [Suspect]
     Indication: BREAST CANCER METASTATIC
     Dosage: 100MGM2 CYCLIC
     Route: 042
     Dates: start: 20090313
  10. ACETAMINOPHEN [Concomitant]
     Dosage: 650MG AS REQUIRED
     Route: 048
     Dates: start: 20090616
  11. ALBUTEROL [Concomitant]
     Indication: PNEUMONIA
     Dosage: 2PUFF FOUR TIMES PER DAY
     Route: 055
     Dates: start: 20090619

REACTIONS (1)
  - LOBAR PNEUMONIA [None]
